FAERS Safety Report 19655524 (Version 1)
Quarter: 2021Q3

REPORT INFORMATION
  Report Type: Report from Study
  Country: US (occurrence: US)
  Receive Date: 20210804
  Receipt Date: 20210804
  Transmission Date: 20211014
  Serious: Yes (Other)
  Sender: FDA-Public Use
  Company Number: US-EMD SERONO-9255182

PATIENT

DRUGS (1)
  1. SEROSTIM [Suspect]
     Active Substance: SOMATROPIN
     Indication: CACHEXIA
     Dosage: 6 MG 7?VIAL PACK
     Route: 058
     Dates: start: 20200729

REACTIONS (2)
  - Incision site pain [Unknown]
  - Gastrostomy [Unknown]
